FAERS Safety Report 13402846 (Version 1)
Quarter: 2017Q2

REPORT INFORMATION
  Report Type: Spontaneous
  Country: US (occurrence: US)
  Receive Date: 20170404
  Receipt Date: 20170404
  Transmission Date: 20170830
  Serious: No
  Sender: FDA-Public Use
  Company Number: US-ROCHE-1785045

PATIENT

DRUGS (5)
  1. AVASTIN [Suspect]
     Active Substance: BEVACIZUMAB
     Indication: PRODUCT USED FOR UNKNOWN INDICATION
     Route: 065
     Dates: start: 201207
  2. IRINOTECAN [Concomitant]
     Active Substance: IRINOTECAN
     Route: 065
     Dates: start: 201207
  3. FOLINIC ACID [Concomitant]
     Active Substance: LEUCOVORIN
     Route: 065
     Dates: start: 201207
  4. OXALIPLATIN. [Concomitant]
     Active Substance: OXALIPLATIN
  5. 5-FU [Concomitant]
     Active Substance: FLUOROURACIL
     Route: 065
     Dates: start: 201207

REACTIONS (4)
  - Abdominal distension [Unknown]
  - Diarrhoea [Unknown]
  - Mucosal inflammation [Unknown]
  - Constipation [Unknown]

NARRATIVE: CASE EVENT DATE: 201506
